FAERS Safety Report 24962408 (Version 2)
Quarter: 2025Q3

REPORT INFORMATION
  Report Type: Spontaneous
  Country: US (occurrence: US)
  Receive Date: 20250212
  Receipt Date: 20250906
  Transmission Date: 20251021
  Serious: Yes (Other)
  Sender: ALEXION PHARMACEUTICALS
  Company Number: US-AstraZeneca-CH-00757114A

PATIENT
  Sex: Female
  Weight: 63.049 kg

DRUGS (1)
  1. BREZTRI [Suspect]
     Active Substance: BUDESONIDE\FORMOTEROL\GLYCOPYRROLATE
     Route: 065
     Dates: start: 20241122, end: 20241122

REACTIONS (6)
  - Pneumonia [Recovered/Resolved]
  - Chills [Recovered/Resolved]
  - Skin disorder [Recovered/Resolved]
  - Blood pressure increased [Recovered/Resolved]
  - Hypoaesthesia oral [Recovered/Resolved]
  - Dry mouth [Recovered/Resolved]
